FAERS Safety Report 17204835 (Version 1)
Quarter: 2019Q4

REPORT INFORMATION
  Report Type: Spontaneous
  Country: US (occurrence: US)
  Receive Date: 20191226
  Receipt Date: 20191226
  Transmission Date: 20200122
  Serious: Yes (Hospitalization)
  Sender: FDA-Public Use
  Company Number: US-BEH-2019110962

PATIENT
  Age: 15 Year
  Sex: Male

DRUGS (29)
  1. ACIDOPHILUS [Concomitant]
     Active Substance: LACTOBACILLUS ACIDOPHILUS
  2. CALCIUM +D [CALCIUM;ERGOCALCIFEROL] [Concomitant]
  3. COLISTIMETHATE [Concomitant]
     Active Substance: COLISTIMETHATE SODIUM
  4. K-TAB [Concomitant]
     Active Substance: POTASSIUM CHLORIDE
  5. FLOVENT HFA [Concomitant]
     Active Substance: FLUTICASONE PROPIONATE
  6. PREDNISONE. [Concomitant]
     Active Substance: PREDNISONE
  7. DIPHENHYDRAMINE. [Concomitant]
     Active Substance: DIPHENHYDRAMINE
  8. GAMUNEX-C [Concomitant]
     Active Substance: HUMAN IMMUNOGLOBULIN G
  9. ARIPIPRAZOLE. [Concomitant]
     Active Substance: ARIPIPRAZOLE
  10. VYVANSE [Concomitant]
     Active Substance: LISDEXAMFETAMINE DIMESYLATE
  11. MAGNESIUM [Concomitant]
     Active Substance: MAGNESIUM
  12. SMZ-TMP DS [Concomitant]
     Active Substance: SULFAMETHOXAZOLE\TRIMETHOPRIM
  13. DEXAMETHASONE SODIUM PHOSPHATE. [Concomitant]
     Active Substance: DEXAMETHASONE SODIUM PHOSPHATE
  14. HYDROXYZINE HCL [Concomitant]
     Active Substance: HYDROXYZINE HYDROCHLORIDE
  15. VITAMINS NOS [Concomitant]
     Active Substance: VITAMINS
  16. URSODIOL. [Concomitant]
     Active Substance: URSODIOL
  17. VENTOLIN HFA [Concomitant]
     Active Substance: ALBUTEROL SULFATE
  18. ZENPEP [Concomitant]
     Active Substance: PANCRELIPASE AMYLASE\PANCRELIPASE LIPASE\PANCRELIPASE PROTEASE
  19. HIZENTRA [Suspect]
     Active Substance: HUMAN IMMUNOGLOBULIN G
     Indication: CYSTIC FIBROSIS
     Dosage: 8 GRAM, QWK
     Route: 058
     Dates: start: 20180406
  20. ALENDRONATE [Concomitant]
     Active Substance: ALENDRONATE SODIUM
  21. KITABIS PAK [Concomitant]
     Active Substance: TOBRAMYCIN
  22. MILK THISTLE PLUS [ARCTIUM LAPPA ROOT;CYNARA CARDUNCULUS LEAF;SCHISAND [Concomitant]
  23. PULMOZYME [Concomitant]
     Active Substance: DORNASE ALFA
  24. HYPERSAL [Concomitant]
     Active Substance: SODIUM CHLORIDE
  25. NORDITROPIN [Concomitant]
     Active Substance: SOMATROPIN
  26. OMEGA 3 [FISH OIL] [Concomitant]
     Active Substance: FISH OIL
  27. ORKAMBI [Concomitant]
     Active Substance: IVACAFTOR\LUMACAFTOR
  28. FLUTICASONE. [Concomitant]
     Active Substance: FLUTICASONE
  29. OMEPRAZOLE. [Concomitant]
     Active Substance: OMEPRAZOLE

REACTIONS (3)
  - Product use in unapproved indication [Unknown]
  - No adverse event [Unknown]
  - Sinus disorder [Recovered/Resolved]

NARRATIVE: CASE EVENT DATE: 20191216
